FAERS Safety Report 7191872-9 (Version None)
Quarter: 2010Q4

REPORT INFORMATION
  Report Type: 
  Country: None (occurrence: None)
  Receive Date: 20101223
  Receipt Date: 20101210
  Transmission Date: 20110411
  Serious: Yes (Hospitalization)
  Sender: FDA-Public Use
  Company Number: PHHY2010BE63461

PATIENT
  Age: 71 Year
  Sex: Male

DRUGS (3)
  1. TASIGNA [Suspect]
     Indication: CHRONIC MYELOID LEUKAEMIA
     Dosage: 2X400 MG DAILY
     Dates: start: 20100601
  2. ZOVIRAX [Concomitant]
  3. BACTRIM [Concomitant]

REACTIONS (5)
  - ASPIRATION PLEURAL CAVITY [None]
  - CARDIAC TAMPONADE [None]
  - OEDEMA PERIPHERAL [None]
  - PERICARDIAL EFFUSION [None]
  - PLEURITIC PAIN [None]
